FAERS Safety Report 9413278 (Version 1)
Quarter: 2013Q3

REPORT INFORMATION
  Report Type: Spontaneous
  Country: US (occurrence: US)
  Receive Date: 20130722
  Receipt Date: 20130722
  Transmission Date: 20140515
  Serious: Yes (Other)
  Sender: FDA-Public Use
  Company Number: CHPA2013US010117

PATIENT
  Age: 54 Year
  Sex: Female

DRUGS (2)
  1. PERDIEM OVERNIGHT RELIEF PILLS [Suspect]
     Indication: CONSTIPATION
     Dosage: 2 DF, PRN
     Route: 048
     Dates: start: 20130618, end: 20130618
  2. PERDIEM FIBER [Suspect]

REACTIONS (3)
  - Diverticulitis [Recovering/Resolving]
  - Abscess [Recovering/Resolving]
  - Abdominal pain [Recovering/Resolving]
